FAERS Safety Report 17761125 (Version 1)
Quarter: 2020Q2

REPORT INFORMATION
  Report Type: Spontaneous
  Country: IT (occurrence: US)
  Receive Date: 20200508
  Receipt Date: 20200508
  Transmission Date: 20200714
  Serious: Yes (Life-Threatening, Hospitalization, Other)
  Sender: FDA-Public Use
  Company Number: IT-OTSUKA-2020_011493

PATIENT
  Sex: Female

DRUGS (3)
  1. SAMSCA [Suspect]
     Active Substance: TOLVAPTAN
     Dosage: 1.25 MG THREE TIMES DAILY
     Route: 065
     Dates: start: 201910
  2. SAMSCA [Suspect]
     Active Substance: TOLVAPTAN
     Indication: HYPONATRAEMIA
     Dosage: 15 MG, QD
     Route: 065
  3. SAMSCA [Suspect]
     Active Substance: TOLVAPTAN
     Dosage: 1 MG THREE TIMES DAILY
     Route: 065
     Dates: start: 201912

REACTIONS (12)
  - Seizure [Recovered/Resolved]
  - Blood sodium decreased [Unknown]
  - Inability to afford medication [Unknown]
  - Drug monitoring procedure incorrectly performed [Unknown]
  - Polyuria [Unknown]
  - Inappropriate schedule of product administration [Unknown]
  - Expired product administered [Unknown]
  - Underdose [Unknown]
  - Rapid correction of hyponatraemia [Unknown]
  - Product use in unapproved indication [Unknown]
  - Coma [Recovered/Resolved]
  - Wrong technique in product usage process [Unknown]

NARRATIVE: CASE EVENT DATE: 201910
